FAERS Safety Report 4269287-2 (Version None)
Quarter: 2004Q1

REPORT INFORMATION
  Report Type: 
  Country: None (occurrence: None)
  Receive Date: 20040109
  Receipt Date: 20031231
  Transmission Date: 20041129
  Serious: Yes (Hospitalization)
  Sender: FDA-Public Use
  Company Number: 235131K03USA

PATIENT
  Age: 55 Year
  Sex: Male

DRUGS (2)
  1. REBIF [Suspect]
     Indication: MULTIPLE SCLEROSIS
     Dates: start: 20031003
  2. AMITRIPTYLINE [Concomitant]

REACTIONS (10)
  - BURNING SENSATION [None]
  - DIZZINESS [None]
  - DYSGEUSIA [None]
  - FALL [None]
  - HEADACHE [None]
  - HIP FRACTURE [None]
  - INSOMNIA [None]
  - NAUSEA [None]
  - PAIN [None]
  - PROCEDURAL COMPLICATION [None]
